FAERS Safety Report 5101085-X (Version None)
Quarter: 2006Q3

REPORT INFORMATION
  Report Type: 
  Country: None (occurrence: None)
  Receive Date: 20060731
  Receipt Date: 20060619
  Transmission Date: 20061208
  Serious: No
  Sender: FDA-Public Use
  Company Number: 2006PV015929

PATIENT
  Age: 58 Year
  Sex: Female
  Weight: 89.3586 kg

DRUGS (6)
  1. BYETTA [Suspect]
     Indication: DIABETES MELLITUS NON-INSULIN-DEPENDENT
     Dosage: SEE IMAGE
     Route: 058
     Dates: start: 20060520, end: 20060615
  2. BYETTA [Suspect]
     Indication: DIABETES MELLITUS NON-INSULIN-DEPENDENT
     Dosage: SEE IMAGE
     Route: 058
     Dates: start: 20060616
  3. ACTOS /USA/ [Concomitant]
  4. MAGNESIUM [Concomitant]
  5. POTASSIUM [Concomitant]
  6. HYDROCHLOROTHIAZIDE [Concomitant]

REACTIONS (4)
  - ABDOMINAL DISTENSION [None]
  - AFFECT LABILITY [None]
  - ANXIETY [None]
  - NAUSEA [None]
